FAERS Safety Report 8145717-0 (Version None)
Quarter: 2012Q1

REPORT INFORMATION
  Report Type: 
  Country: None (occurrence: None)
  Receive Date: 20120217
  Receipt Date: 20120210
  Transmission Date: 20120608
  Serious: Yes (Other)
  Sender: FDA-Public Use
  Company Number: JP-EISAI INC-E2090-01967-SPO-JP

PATIENT
  Sex: Male

DRUGS (3)
  1. ZONISAMIDE [Suspect]
     Dosage: 300 MG DAILY
     Route: 048
     Dates: start: 20111219, end: 20111223
  2. MUCOSTA [Concomitant]
     Dates: end: 20111223
  3. LANSOPRAZOLE [Concomitant]
     Dates: end: 20111223

REACTIONS (4)
  - PHARYNGITIS [None]
  - HEPATIC FUNCTION ABNORMAL [None]
  - NEUTROPENIA [None]
  - DRUG ERUPTION [None]
